FAERS Safety Report 8953529 (Version 1)
Quarter: 2012Q4

REPORT INFORMATION
  Report Type: Report from Study
  Country: VE (occurrence: VE)
  Receive Date: 20121206
  Receipt Date: 20121206
  Transmission Date: 20130627
  Serious: Yes (Other)
  Sender: FDA-Public Use
  Company Number: VE-ROCHE-1164910

PATIENT
  Age: 44 Year
  Sex: Female
  Weight: 73 kg

DRUGS (5)
  1. CAPECITABINE [Suspect]
     Indication: BREAST CANCER
     Route: 048
     Dates: start: 20120901
  2. CAPECITABINE [Suspect]
     Route: 048
  3. TRASTUZUMAB [Suspect]
     Indication: BREAST CANCER
     Route: 065
     Dates: start: 20110113, end: 20120901
  4. LAPATINIB [Concomitant]
     Indication: BREAST CANCER
     Route: 048
     Dates: start: 20120901
  5. LAPATINIB [Concomitant]
     Route: 048

REACTIONS (5)
  - Disease progression [Unknown]
  - Rash [Not Recovered/Not Resolved]
  - Palmar-plantar erythrodysaesthesia syndrome [Not Recovered/Not Resolved]
  - Diarrhoea [Recovered/Resolved]
  - Tachycardia [Unknown]
